FAERS Safety Report 4922741-X (Version None)
Quarter: 2006Q1

REPORT INFORMATION
  Report Type: 
  Country: None (occurrence: None)
  Receive Date: 20060224
  Receipt Date: 20051013
  Transmission Date: 20060701
  Serious: Yes (Hospitalization, Disabling, Other)
  Sender: FDA-Public Use
  Company Number: PR-MERCK-0510USA07321

PATIENT
  Sex: Female
  Weight: 80 kg

DRUGS (8)
  1. VIOXX [Suspect]
     Indication: BACK PAIN
     Route: 048
     Dates: start: 20000419, end: 20040901
  2. VIOXX [Suspect]
     Route: 048
     Dates: start: 20000419, end: 20040901
  3. VIOXX [Suspect]
     Indication: ARTHRALGIA
     Route: 048
     Dates: start: 20000419, end: 20040901
  4. VIOXX [Suspect]
     Route: 048
     Dates: start: 20000419, end: 20040901
  5. ASPIRIN [Concomitant]
     Route: 065
  6. ALLEGRA [Concomitant]
     Route: 065
  7. DIFLUCAN [Concomitant]
     Indication: INFECTION
     Route: 065
     Dates: start: 19980411, end: 20030101
  8. SYNTHROID [Concomitant]
     Indication: THYROID DISORDER
     Route: 065
     Dates: start: 20000307, end: 20030101

REACTIONS (14)
  - ABDOMINAL PAIN UPPER [None]
  - ANXIETY [None]
  - ARTHROPATHY [None]
  - BACK INJURY [None]
  - CEREBRAL INFARCTION [None]
  - CHEST PAIN [None]
  - HEADACHE [None]
  - HYPERCHLORHYDRIA [None]
  - HYPERTENSION [None]
  - INFECTION [None]
  - MAJOR DEPRESSION [None]
  - MYOCARDIAL INFARCTION [None]
  - PAIN [None]
  - PRESCRIBED OVERDOSE [None]
